FAERS Safety Report 12723981 (Version 1)
Quarter: 2016Q3

REPORT INFORMATION
  Report Type: Spontaneous
  Country: US (occurrence: US)
  Receive Date: 20160908
  Receipt Date: 20160908
  Transmission Date: 20161109
  Serious: No
  Sender: FDA-Public Use
  Company Number: US-FERRINGPH-2016FE01588

PATIENT
  Age: 57 Year
  Sex: Male
  Weight: 77.98 kg

DRUGS (2)
  1. PREPOPIK [Suspect]
     Active Substance: ANHYDROUS CITRIC ACID\MAGNESIUM OXIDE\SODIUM PICOSULFATE
     Indication: BOWEL PREPARATION
     Dosage: 1 SACHET
     Route: 048
     Dates: start: 20160404
  2. FENTANYL. [Concomitant]
     Active Substance: FENTANYL
     Route: 062

REACTIONS (2)
  - Underdose [Not Recovered/Not Resolved]
  - Drug ineffective [Not Recovered/Not Resolved]

NARRATIVE: CASE EVENT DATE: 20160404
